FAERS Safety Report 11743511 (Version 1)
Quarter: 2015Q4

REPORT INFORMATION
  Report Type: Spontaneous
  Country: US (occurrence: US)
  Receive Date: 20151116
  Receipt Date: 20151116
  Transmission Date: 20160304
  Serious: No
  Sender: FDA-Public Use
  Company Number: US-BAYER-2015-465140

PATIENT
  Age: 53 Year
  Sex: Female
  Weight: 90.7 kg

DRUGS (4)
  1. ESTER-C [ASCORBIC ACID] [Concomitant]
     Dosage: UNK
  2. OMEPRAZOLE. [Concomitant]
     Active Substance: OMEPRAZOLE
     Dosage: UNK
  3. MIRALAX [Suspect]
     Active Substance: POLYETHYLENE GLYCOL 3350
     Indication: CONSTIPATION
     Dosage: 1 DF, QD
     Route: 048
  4. ONE-A-DAY [Concomitant]
     Dosage: UNK

REACTIONS (3)
  - Pollakiuria [Not Recovered/Not Resolved]
  - Drug ineffective [None]
  - Product use issue [None]

NARRATIVE: CASE EVENT DATE: 201001
